FAERS Safety Report 9645051 (Version 2)
Quarter: 2013Q4

REPORT INFORMATION
  Report Type: Spontaneous
  Country: AT (occurrence: AT)
  Receive Date: 20131025
  Receipt Date: 20131113
  Transmission Date: 20140711
  Serious: Yes (Death, Hospitalization)
  Sender: FDA-Public Use
  Company Number: AT-MPIJNJ-2013JNJ000655

PATIENT
  Sex: 0

DRUGS (2)
  1. VELCADE [Suspect]
     Indication: PLASMA CELL MYELOMA
     Dosage: 1.3 MG/M2, UNK
     Route: 065
     Dates: start: 20130828, end: 20130907
  2. CYMEVENE                           /00784201/ [Concomitant]
     Dosage: UNK
     Dates: start: 20130909, end: 20130910

REACTIONS (1)
  - Encephalitis cytomegalovirus [Fatal]
